FAERS Safety Report 7135781-X (Version None)
Quarter: 2010Q4

REPORT INFORMATION
  Report Type: 
  Country: None (occurrence: None)
  Receive Date: 20101203
  Receipt Date: 20101129
  Transmission Date: 20110411
  Serious: Yes (Other)
  Sender: FDA-Public Use
  Company Number: US-PFIZER INC-2010161662

PATIENT
  Sex: Male

DRUGS (1)
  1. TOVIAZ [Suspect]

REACTIONS (4)
  - MUSCLE SPASMS [None]
  - SENSATION OF PRESSURE [None]
  - URINARY RETENTION [None]
  - URINE FLOW DECREASED [None]
